FAERS Safety Report 6503631-8 (Version None)
Quarter: 2009Q4

REPORT INFORMATION
  Report Type: 
  Country: None (occurrence: None)
  Receive Date: 20091217
  Receipt Date: 20091215
  Transmission Date: 20100525
  Serious: Yes (Death, Hospitalization)
  Sender: FDA-Public Use
  Company Number: US-JNJFOC-20091204478

PATIENT
  Sex: Male
  Weight: 60.01 kg

DRUGS (11)
  1. DARUNAVIR [Suspect]
     Indication: HIV INFECTION
     Route: 048
  2. MARAVIROC [Suspect]
     Indication: HIV INFECTION
     Route: 048
  3. NORVIR [Concomitant]
     Indication: HIV INFECTION
  4. VIREAD [Concomitant]
     Indication: HIV INFECTION
  5. LANSOPRAZOLE [Concomitant]
     Indication: GASTROOESOPHAGEAL REFLUX DISEASE
  6. CRESTOR [Concomitant]
     Indication: HYPERLIPIDAEMIA
  7. SERETIDE [Concomitant]
     Indication: ASTHMA
  8. VENTOLIN [Concomitant]
     Indication: ASTHMA
  9. KARDEGIC [Concomitant]
  10. LEXOMIL [Concomitant]
  11. XYZAL [Concomitant]

REACTIONS (1)
  - MYOCARDIAL INFARCTION [None]
